FAERS Safety Report 8177347-9 (Version None)
Quarter: 2012Q1

REPORT INFORMATION
  Report Type: 
  Country: None (occurrence: None)
  Receive Date: 20120301
  Receipt Date: 20120222
  Transmission Date: 20120608
  Serious: Yes (Hospitalization)
  Sender: FDA-Public Use
  Company Number: US-BAYER-2012-018556

PATIENT
  Age: 33 Year
  Sex: Female

DRUGS (4)
  1. YASMIN [Suspect]
     Dosage: UNK
     Dates: start: 20100201, end: 20100601
  2. RECLIPSEN [Concomitant]
     Dosage: UNK
     Dates: start: 20100201, end: 20100301
  3. PRILOSEC [Concomitant]
  4. YAZ [Suspect]
     Dosage: UNK
     Dates: start: 20100301

REACTIONS (2)
  - DEEP VEIN THROMBOSIS [None]
  - PULMONARY EMBOLISM [None]
